FAERS Safety Report 14526344 (Version 1)
Quarter: 2018Q1

REPORT INFORMATION
  Report Type: Spontaneous
  Country: US (occurrence: US)
  Receive Date: 20180212
  Receipt Date: 20180212
  Transmission Date: 20180509
  Serious: Yes (Hospitalization)
  Sender: FDA-Public Use
  Company Number: None

PATIENT
  Age: 54 Year
  Sex: Female

DRUGS (1)
  1. OCREVUS [Suspect]
     Active Substance: OCRELIZUMAB
     Indication: MULTIPLE SCLEROSIS
     Dosage: 300MG DAY 1+15 IV
     Route: 042
     Dates: start: 20180119

REACTIONS (8)
  - Nasopharyngitis [None]
  - Fall [None]
  - Vision blurred [None]
  - Pain [None]
  - Rash [None]
  - Urinary incontinence [None]
  - Loss of control of legs [None]
  - Hemiparesis [None]

NARRATIVE: CASE EVENT DATE: 20180119
